FAERS Safety Report 10155229 (Version 2)
Quarter: 2014Q2

REPORT INFORMATION
  Report Type: Report from Study
  Country: MX (occurrence: MX)
  Receive Date: 20140506
  Receipt Date: 20140506
  Transmission Date: 20141212
  Serious: Yes (Other)
  Sender: FDA-Public Use
  Company Number: PHHY2013MX058370

PATIENT
  Age: 80 Year
  Sex: Female

DRUGS (3)
  1. EXFORGE HCT [Suspect]
     Indication: HYPERTENSION
     Dosage: 1 TABLET (160/5/12.5 MG) , DAILY
     Route: 048
     Dates: start: 201010, end: 20130529
  2. EXFORGE HCT [Suspect]
     Dosage: 1 TABLET (160/5/12.5 MG) , UKN
     Route: 048
  3. EXFORGE [Suspect]
     Indication: HYPERTENSION
     Dosage: 1 TABLET (160/ 5 MG), DAILY
     Route: 048
     Dates: start: 20130529

REACTIONS (5)
  - Diabetic foot [Unknown]
  - Localised infection [Unknown]
  - Skin irritation [Unknown]
  - Oedema peripheral [Unknown]
  - Drug dispensing error [Unknown]
